FAERS Safety Report 20127818 (Version 1)
Quarter: 2021Q4

REPORT INFORMATION
  Report Type: Spontaneous
  Country: KR (occurrence: KR)
  Receive Date: 20211129
  Receipt Date: 20211129
  Transmission Date: 20220303
  Serious: Yes (Other)
  Sender: FDA-Public Use
  Company Number: KR-ANIPHARMA-2021-KR-000077

PATIENT
  Sex: Male

DRUGS (1)
  1. ATACAND [Suspect]
     Active Substance: CANDESARTAN CILEXETIL
     Indication: Product used for unknown indication
     Dosage: .5 DF UNK / 1 DF UNK / 3 DF UNK / 2 DF UNK
     Route: 048

REACTIONS (1)
  - Blood pressure increased [Unknown]
